FAERS Safety Report 10227162 (Version 2)
Quarter: 2014Q2

REPORT INFORMATION
  Report Type: Spontaneous
  Country: DE (occurrence: None)
  Receive Date: 20140606
  Receipt Date: 20140616
  Transmission Date: 20141212
  Serious: Yes (Life-Threatening, Hospitalization, Other)
  Sender: FDA-Public Use
  Company Number: 2014MPI00575

PATIENT
  Age: 64 Year
  Sex: Male
  Weight: 70 kg

DRUGS (3)
  1. ADCETRIS (BRENTUXIMAB VEDOTIN) INJECTION [Suspect]
     Indication: PRODUCT USED FOR UNKNOWN INDICATION
     Dosage: 1.8 MG/KG, Q21D, INTRAVENOUS
     Route: 042
     Dates: start: 20140206
  2. DIGOXIN [Concomitant]
  3. BETABLOCKING AGENT (BETABLOCKING AGENT) [Concomitant]

REACTIONS (11)
  - Systemic inflammatory response syndrome [None]
  - Cytokine release syndrome [None]
  - Cardiovascular insufficiency [None]
  - Pyrexia [None]
  - Shock [None]
  - Chills [None]
  - Fall [None]
  - Confusional state [None]
  - Atrial fibrillation [None]
  - Tachycardia [None]
  - Cardiovascular insufficiency [None]
